FAERS Safety Report 9703732 (Version 2)
Quarter: 2013Q4

REPORT INFORMATION
  Report Type: Report from Study
  Country: US (occurrence: US)
  Receive Date: 20131122
  Receipt Date: 20131129
  Transmission Date: 20140711
  Serious: Yes (Hospitalization)
  Sender: FDA-Public Use
  Company Number: US-JNJFOC-20131110693

PATIENT
  Age: 16 Year
  Sex: Female
  Weight: 56.7 kg

DRUGS (6)
  1. REMICADE [Suspect]
     Indication: INFLAMMATORY BOWEL DISEASE
     Route: 042
     Dates: start: 20120221
  2. BUDESONIDE [Concomitant]
     Route: 065
  3. METHOTREXATE [Concomitant]
     Route: 065
  4. ONDANSETRON [Concomitant]
     Route: 065
  5. FOLIC ACID [Concomitant]
     Route: 065
  6. MIRALAX [Concomitant]
     Route: 065

REACTIONS (1)
  - Ileal stenosis [Recovered/Resolved]
